FAERS Safety Report 12390080 (Version 1)
Quarter: 2016Q2

REPORT INFORMATION
  Report Type: Spontaneous
  Country: FR (occurrence: FR)
  Receive Date: 20160520
  Receipt Date: 20160520
  Transmission Date: 20160815
  Serious: Yes (Hospitalization, Other)
  Sender: FDA-Public Use
  Company Number: FR-BAXALTA-2016BLT003486

PATIENT
  Age: 10 Month
  Sex: Female

DRUGS (15)
  1. VINCRISTINE [Concomitant]
     Active Substance: VINCRISTINE
     Dosage: UNK
     Route: 065
     Dates: start: 20150716, end: 20150716
  2. CYTARABINE. [Concomitant]
     Active Substance: CYTARABINE
     Indication: ACUTE LYMPHOCYTIC LEUKAEMIA
     Dosage: UNK
     Route: 065
     Dates: start: 20150716, end: 20150716
  3. ONCASPAR [Suspect]
     Active Substance: PEGASPARGASE
     Indication: ACUTE LYMPHOCYTIC LEUKAEMIA
     Dosage: 880 IU, UNK
     Route: 042
     Dates: start: 20151116, end: 20151116
  4. ONCASPAR [Suspect]
     Active Substance: PEGASPARGASE
     Dosage: UNK
     Route: 065
     Dates: start: 20150929, end: 20150929
  5. ONCASPAR [Suspect]
     Active Substance: PEGASPARGASE
     Dosage: UNK
     Route: 065
     Dates: start: 20150716, end: 20150716
  6. DAUNORUBICIN [Concomitant]
     Active Substance: DAUNORUBICIN
     Indication: ACUTE LYMPHOCYTIC LEUKAEMIA
     Dosage: UNK
     Route: 065
     Dates: start: 20151116, end: 20151116
  7. ARACYTINE [Concomitant]
     Active Substance: CYTARABINE
     Indication: ACUTE LYMPHOCYTIC LEUKAEMIA
     Dosage: UNK
     Route: 065
     Dates: start: 20151116, end: 20151116
  8. ARACYTINE [Concomitant]
     Active Substance: CYTARABINE
     Dosage: UNK
     Route: 065
     Dates: start: 20150929, end: 20150929
  9. METHOTREXATE [Concomitant]
     Active Substance: METHOTREXATE
     Indication: ACUTE LYMPHOCYTIC LEUKAEMIA
     Dosage: HIGH DOSE, UNK
     Route: 065
     Dates: start: 20150929, end: 20150929
  10. METHOTREXATE [Concomitant]
     Active Substance: METHOTREXATE
     Dosage: UNK
     Route: 065
     Dates: start: 20150716, end: 20150716
  11. ONCASPAR [Suspect]
     Active Substance: PEGASPARGASE
     Dosage: 880 IU, UNK
     Route: 065
     Dates: start: 20151023, end: 20151023
  12. DEXAMETHASONE. [Concomitant]
     Active Substance: DEXAMETHASONE
     Indication: ACUTE LYMPHOCYTIC LEUKAEMIA
     Dosage: UNK
     Route: 065
  13. ARACYTINE [Concomitant]
     Active Substance: CYTARABINE
     Dosage: UNK
     Route: 065
     Dates: start: 20150716, end: 20150716
  14. DAUNORUBICIN [Concomitant]
     Active Substance: DAUNORUBICIN
     Dosage: UNK
     Route: 065
     Dates: start: 20150716, end: 20150716
  15. VINCRISTINE [Concomitant]
     Active Substance: VINCRISTINE
     Indication: ACUTE LYMPHOCYTIC LEUKAEMIA
     Dosage: UNK
     Route: 065
     Dates: start: 20151116, end: 20151116

REACTIONS (1)
  - Shock [Recovered/Resolved]

NARRATIVE: CASE EVENT DATE: 20151116
